FAERS Safety Report 7072358-9 (Version None)
Quarter: 2010Q4

REPORT INFORMATION
  Report Type: 
  Country: None (occurrence: None)
  Receive Date: 20101028
  Receipt Date: 20101028
  Transmission Date: 20110411
  Serious: Yes (Other)
  Sender: FDA-Public Use
  Company Number: None

PATIENT
  Sex: Male

DRUGS (1)
  1. UP AND UP MENS HAIR REGROWTH MINOXIDIL TOPICAL SOLUTION USP 5% PERRIGO [Suspect]
     Indication: ALOPECIA
     Dosage: 1 ML 2X DAILY TOP
     Route: 061
     Dates: start: 20101012, end: 20101013

REACTIONS (1)
  - CHEST PAIN [None]
